FAERS Safety Report 7438863-8 (Version None)
Quarter: 2011Q2

REPORT INFORMATION
  Report Type: 
  Country: None (occurrence: None)
  Receive Date: 20110426
  Receipt Date: 20110418
  Transmission Date: 20111010
  Serious: Yes (Hospitalization, Disabling)
  Sender: FDA-Public Use
  Company Number: US-MERCK-0906USA01115

PATIENT
  Age: 51 Year
  Sex: Female
  Weight: 55 kg

DRUGS (4)
  1. FOSAMAX [Suspect]
     Indication: OSTEOPOROSIS
     Route: 048
     Dates: start: 20000101, end: 20070801
  2. FOSAMAX [Suspect]
     Indication: OSTEOPENIA
     Route: 048
     Dates: start: 20000101, end: 20070801
  3. FOSAMAX [Suspect]
     Route: 048
     Dates: start: 20000101, end: 20070801
  4. FOSAMAX [Suspect]
     Route: 048
     Dates: start: 20000101, end: 20070801

REACTIONS (21)
  - STRESS FRACTURE [None]
  - PLANTAR FASCIITIS [None]
  - TOOTH DISORDER [None]
  - VENOUS INSUFFICIENCY [None]
  - ORAL HERPES [None]
  - UPPER RESPIRATORY TRACT INFECTION [None]
  - MUSCLE STRAIN [None]
  - LIMB INJURY [None]
  - TENDONITIS [None]
  - MENOPAUSE [None]
  - MYOCARDIAL ISCHAEMIA [None]
  - FEMORAL NECK FRACTURE [None]
  - LOW TURNOVER OSTEOPATHY [None]
  - BURSITIS [None]
  - FEMUR FRACTURE [None]
  - OSTEOPOROSIS [None]
  - PANCREATITIS [None]
  - WEIGHT INCREASED [None]
  - ANAEMIA [None]
  - FALL [None]
  - VERTIGO [None]
